FAERS Safety Report 24876462 (Version 2)
Quarter: 2025Q1

REPORT INFORMATION
  Report Type: Report from Study
  Country: US (occurrence: US)
  Receive Date: 20250123
  Receipt Date: 20250123
  Transmission Date: 20250408
  Serious: No
  Sender: BRISTOL-MYERS SQUIBB COMPANY
  Company Number: US-BRISTOL-MYERS SQUIBB COMPANY-2025-010059

PATIENT
  Age: 49 Year
  Sex: Female
  Weight: 108.86 kg

DRUGS (5)
  1. ORENCIA [Suspect]
     Active Substance: ABATACEPT
     Indication: Rheumatoid arthritis
     Dosage: FREQ: RECEIVED THE LOADING DOSE OF AN INFUSION EVERY 2 WEEKS FOR 2 DOSES
     Route: 042
  2. IRON [Concomitant]
     Active Substance: IRON
     Indication: Product used for unknown indication
  3. LOSARTAN [Concomitant]
     Active Substance: LOSARTAN
     Indication: Product used for unknown indication
  4. TYLENOL [Concomitant]
     Active Substance: ACETAMINOPHEN
     Indication: Product used for unknown indication
  5. ARDOSONS [Concomitant]
     Indication: Product used for unknown indication

REACTIONS (2)
  - Oral pain [Recovering/Resolving]
  - Glossodynia [Recovering/Resolving]
